FAERS Safety Report 10559689 (Version 2)
Quarter: 2015Q1

REPORT INFORMATION
  Report Type: Spontaneous
  Country: DE (occurrence: DE)
  Receive Date: 20141103
  Receipt Date: 20150203
  Transmission Date: 20150720
  Serious: Yes (Hospitalization, Other)
  Sender: FDA-Public Use
  Company Number: PHHY2014DE141330

PATIENT
  Sex: Male

DRUGS (5)
  1. LEPONEX [Suspect]
     Active Substance: CLOZAPINE
     Dosage: 250 MG, DAILY (1DF= 50MG)
     Route: 065
     Dates: end: 2014
  2. AMISULPRIDE [Concomitant]
     Active Substance: AMISULPRIDE
     Indication: SCHIZOPHRENIA
     Dosage: UNK
     Route: 065
  3. LEPONEX [Suspect]
     Active Substance: CLOZAPINE
     Indication: SCHIZOPHRENIA
     Dosage: UNK
     Route: 065
     Dates: start: 2014
  4. HALDOL [Concomitant]
     Active Substance: HALOPERIDOL
     Indication: SCHIZOPHRENIA
     Dosage: UNK
     Route: 065
  5. OLANZAPINE. [Concomitant]
     Active Substance: OLANZAPINE
     Indication: SCHIZOPHRENIA
     Dosage: UNK
     Route: 065

REACTIONS (2)
  - Schizophrenia [Not Recovered/Not Resolved]
  - Hypertrophic cardiomyopathy [Recovering/Resolving]

NARRATIVE: CASE EVENT DATE: 201410
